FAERS Safety Report 26008004 (Version 2)
Quarter: 2025Q4

REPORT INFORMATION
  Report Type: Spontaneous
  Country: US (occurrence: US)
  Receive Date: 20251106
  Receipt Date: 20251107
  Transmission Date: 20260118
  Serious: No
  Sender: SANOFI AVENTIS
  Company Number: US-SA-2025SA299277

PATIENT
  Age: 62 Year
  Sex: Female
  Weight: 52.154 kg

DRUGS (11)
  1. DUPIXENT [Suspect]
     Active Substance: DUPILUMAB
     Indication: Dermatitis atopic
     Dosage: 300 MG, QOW
     Route: 058
     Dates: start: 20250902
  2. TACROLIMUS [Concomitant]
     Active Substance: TACROLIMUS
  3. CLOBETASOL [Concomitant]
     Active Substance: CLOBETASOL
  4. ALEVE [Concomitant]
     Active Substance: NAPROXEN SODIUM
  5. MUCINEX [Concomitant]
     Active Substance: GUAIFENESIN
  6. FLONASE ALLERGY RELIEF [Concomitant]
     Active Substance: FLUTICASONE PROPIONATE
  7. PREMARIN [Concomitant]
     Active Substance: ESTROGENS, CONJUGATED
  8. ALPRAZOLAM [Concomitant]
     Active Substance: ALPRAZOLAM
  9. METOPROLOL SUCCINATE [Concomitant]
     Active Substance: METOPROLOL SUCCINATE
  10. TACROLIMUS [Concomitant]
     Active Substance: TACROLIMUS
  11. VITAMINS [Concomitant]
     Active Substance: VITAMINS

REACTIONS (4)
  - Alopecia [Not Recovered/Not Resolved]
  - Nail deformation [Not Recovered/Not Resolved]
  - Eczema [Not Recovered/Not Resolved]
  - Skin exfoliation [Not Recovered/Not Resolved]

NARRATIVE: CASE EVENT DATE: 20250101
